FAERS Safety Report 6929550-0 (Version None)
Quarter: 2010Q3

REPORT INFORMATION
  Report Type: 
  Country: None (occurrence: None)
  Receive Date: 20100813
  Receipt Date: 20100804
  Transmission Date: 20110219
  Serious: Yes (Hospitalization)
  Sender: FDA-Public Use
  Company Number: 2010SP025271

PATIENT
  Sex: Female

DRUGS (5)
  1. SAPHRIS [Suspect]
     Indication: BIPOLAR DISORDER
     Dosage: 10 MG;QD;SL
     Route: 060
     Dates: start: 20100501, end: 20100601
  2. LITHIUM CARBONATE [Concomitant]
  3. LUNESTA [Concomitant]
  4. TOPAMAX [Concomitant]
  5. LAMICTAL [Concomitant]

REACTIONS (2)
  - BLOOD POTASSIUM INCREASED [None]
  - MYALGIA [None]
